FAERS Safety Report 4933988-0 (Version None)
Quarter: 2006Q1

REPORT INFORMATION
  Report Type: 
  Country: None (occurrence: None)
  Receive Date: 20060303
  Receipt Date: 20060222
  Transmission Date: 20060701
  Serious: Yes (Other)
  Sender: FDA-Public Use
  Company Number: 2006025443

PATIENT
  Age: 76 Year
  Sex: Male

DRUGS (1)
  1. CELECOXIB (CELECOXIB) [Suspect]
     Indication: ARTHRALGIA
     Dosage: 200 MG (200  MG, 1 IN 1 D), ORAL
     Route: 048
     Dates: end: 20011201

REACTIONS (4)
  - ABNORMAL BEHAVIOUR [None]
  - COGNITIVE DISORDER [None]
  - DEMENTIA [None]
  - EXTRAPYRAMIDAL DISORDER [None]
